FAERS Safety Report 15560143 (Version 1)
Quarter: 2018Q4

REPORT INFORMATION
  Report Type: Spontaneous
  Country: CH (occurrence: CH)
  Receive Date: 20181029
  Receipt Date: 20181029
  Transmission Date: 20190205
  Serious: Yes (Other)
  Sender: FDA-Public Use
  Company Number: PHHY2018CH128240

PATIENT
  Age: 14 Year
  Sex: Male

DRUGS (2)
  1. ZOLEDRONATE [Suspect]
     Active Substance: ZOLEDRONIC ACID
     Dosage: 0.04 MG/KG, UNK (6 MONTHS LATER)
     Route: 041
  2. ZOLEDRONATE [Suspect]
     Active Substance: ZOLEDRONIC ACID
     Indication: DUCHENNE MUSCULAR DYSTROPHY
     Dosage: 0.04 MG/KG, UNK
     Route: 041

REACTIONS (7)
  - Myoglobinuria [Recovered/Resolved]
  - Myalgia [Recovered/Resolved]
  - Rhabdomyolysis [Recovered/Resolved]
  - Influenza like illness [Recovered/Resolved]
  - Chromaturia [Recovered/Resolved]
  - Product use in unapproved indication [Unknown]
  - Vomiting [Recovered/Resolved]
